FAERS Safety Report 8590781 (Version 3)
Quarter: 2025Q2

REPORT INFORMATION
  Report Type: Spontaneous
  Country: US (occurrence: US)
  Receive Date: 20120601
  Receipt Date: 20250508
  Transmission Date: 20250716
  Serious: Yes (Hospitalization, Other)
  Sender: ROCHE
  Company Number: US-ROCHE-1071617

PATIENT
  Age: 51 Year
  Sex: Female

DRUGS (3)
  1. BONIVA [Suspect]
     Active Substance: IBANDRONATE SODIUM
     Indication: Osteoporosis
     Dosage: AS REQUIRED
     Route: 048
     Dates: start: 2000, end: 2009
  2. FOSAMAX [Suspect]
     Active Substance: ALENDRONATE SODIUM
     Indication: Osteoporosis
     Route: 065
     Dates: start: 2000, end: 2009
  3. RECLAST [Suspect]
     Active Substance: ZOLEDRONIC ACID
     Indication: Osteoporosis
     Route: 065
     Dates: start: 2000, end: 2009

REACTIONS (10)
  - Femur fracture [Unknown]
  - Emotional distress [Unknown]
  - Tooth abscess [Unknown]
  - Pyrexia [Unknown]
  - Neck pain [Unknown]
  - Paraesthesia [Unknown]
  - Generalised anxiety disorder [Unknown]
  - Headache [Unknown]
  - Gingival bleeding [Not Recovered/Not Resolved]
  - Thrombocytopenia [Unknown]

NARRATIVE: CASE EVENT DATE: 20100515
